FAERS Safety Report 19982945 (Version 1)
Quarter: 2021Q4

REPORT INFORMATION
  Report Type: Spontaneous
  Country: US (occurrence: US)
  Receive Date: 20211021
  Receipt Date: 20211021
  Transmission Date: 20220303
  Serious: Yes (Other)
  Sender: FDA-Public Use
  Company Number: US-SA-SAC20211018001256

PATIENT
  Age: 38 Year
  Sex: Female

DRUGS (2)
  1. ZANTAC [Suspect]
     Active Substance: RANITIDINE HYDROCHLORIDE
     Indication: Dyspepsia
     Dosage: 75 MG, QD
     Dates: start: 200901, end: 201901
  2. ZANTAC [Suspect]
     Active Substance: RANITIDINE HYDROCHLORIDE
     Indication: Gastrooesophageal reflux disease

REACTIONS (7)
  - Cervix carcinoma stage I [Recovering/Resolving]
  - Ovarian cancer [Unknown]
  - Uterine cancer [Unknown]
  - Bladder cancer stage IV [Unknown]
  - Renal cancer stage IV [Unknown]
  - Gallbladder cancer stage I [Recovering/Resolving]
  - Oesophageal carcinoma [Unknown]

NARRATIVE: CASE EVENT DATE: 20110201
